FAERS Safety Report 7012205-4 (Version None)
Quarter: 2010Q3

REPORT INFORMATION
  Report Type: 
  Country: None (occurrence: None)
  Receive Date: 20100924
  Receipt Date: 20100916
  Transmission Date: 20110219
  Serious: Yes (Hospitalization)
  Sender: FDA-Public Use
  Company Number: JP-ELI_LILLY_AND_COMPANY-JP201007006978

PATIENT
  Age: 52 Year
  Sex: Male
  Weight: 53 kg

DRUGS (16)
  1. PEMETREXED [Suspect]
     Indication: LUNG ADENOCARCINOMA STAGE IV
     Dosage: 800 MG, UNK
     Route: 042
     Dates: start: 20090908, end: 20090908
  2. PANVITAN [Concomitant]
     Dosage: 1 G, DAILY (1/D), 0.5 MG/D AS FOLIC ACID
     Route: 048
     Dates: start: 20090901, end: 20091007
  3. HYDROXOCOBALAMINE [Concomitant]
     Dosage: 1 MG, UNK
     Route: 030
     Dates: start: 20090901, end: 20090901
  4. SOL-MELCORT [Concomitant]
     Dosage: 125 MG, UNK
     Route: 042
     Dates: start: 20090908, end: 20090908
  5. KYTRIL [Concomitant]
     Dosage: 1 D/F, UNK
     Route: 042
     Dates: start: 20090908, end: 20090908
  6. DEXART [Concomitant]
     Dosage: 1.65 MG, UNK
     Route: 042
     Dates: start: 20090908, end: 20090908
  7. DECADRON [Concomitant]
     Route: 048
     Dates: start: 20090908, end: 20090910
  8. PRIMPERAN TAB [Concomitant]
     Dosage: 1 D/F, 2/D
     Route: 042
     Dates: start: 20090908, end: 20090908
  9. KYTRIL [Concomitant]
     Dosage: 1 D/F, 2/D
     Route: 048
     Dates: start: 20090909, end: 20090910
  10. LOXONIN [Concomitant]
     Indication: CANCER PAIN
     Route: 065
     Dates: end: 20090920
  11. GAMOFA [Concomitant]
     Indication: PROPHYLAXIS
     Route: 065
     Dates: end: 20090920
  12. MAGNESIUM OXIDE [Concomitant]
     Indication: CONSTIPATION PROPHYLAXIS
     Route: 048
     Dates: start: 20090910, end: 20090923
  13. ZOMETA [Concomitant]
     Indication: PROPHYLAXIS
     Route: 042
     Dates: start: 20090916, end: 20090916
  14. KETOPROFEN [Concomitant]
     Indication: CANCER PAIN
     Route: 062
     Dates: start: 20091003, end: 20091021
  15. FESIN [Concomitant]
     Indication: ANAEMIA PROPHYLAXIS
     Route: 042
     Dates: start: 20091003, end: 20091020
  16. DEPAS [Concomitant]
     Indication: PROPHYLAXIS
     Dosage: UNK, UNK
     Route: 048
     Dates: start: 20091013, end: 20091119

REACTIONS (1)
  - PANCREATITIS ACUTE [None]
